FAERS Safety Report 6344615-2 (Version None)
Quarter: 2009Q3

REPORT INFORMATION
  Report Type: 
  Country: None (occurrence: None)
  Receive Date: 20090903
  Receipt Date: 20090817
  Transmission Date: 20100115
  Serious: Yes (Hospitalization)
  Sender: FDA-Public Use
  Company Number: 2009AL002988

PATIENT
  Age: 55 Year
  Sex: Female

DRUGS (31)
  1. DIGOXIN [Suspect]
     Dosage: 0.25MG, DAILY, PO
     Route: 048
     Dates: start: 20070201
  2. NORVASC [Concomitant]
  3. LEVOXYL [Concomitant]
  4. METFORMIN HCL [Concomitant]
  5. PLAVIX [Concomitant]
  6. CORGARD [Concomitant]
  7. LORTAB [Concomitant]
  8. FLEXERIL [Concomitant]
  9. EQUALINE [Concomitant]
  10. LIPITOR [Concomitant]
  11. DILANTIN [Concomitant]
  12. LEVOTHYROXINE SODIUM [Concomitant]
  13. HYDROCODONE [Concomitant]
  14. LISINOPRIL [Concomitant]
  15. FUROSEMIDE [Concomitant]
  16. ASPIRIN [Concomitant]
  17. ZETIA [Concomitant]
  18. NITROGLYCERIN [Concomitant]
  19. PROZAC [Concomitant]
  20. NOVOLOG [Concomitant]
  21. POTASSIUM CHLORIDE [Concomitant]
  22. DIXEPIN [Concomitant]
  23. NADOLOL [Concomitant]
  24. ASPIRIN [Concomitant]
  25. ZETIA [Concomitant]
  26. NITROGLYCERIN [Concomitant]
  27. PROAZAC [Concomitant]
  28. NOVOLOG [Concomitant]
  29. POTASSIUM CHLORIDE [Concomitant]
  30. DIXEPIN [Concomitant]
  31. NADOLOL [Concomitant]

REACTIONS (10)
  - CHEST PAIN [None]
  - ECONOMIC PROBLEM [None]
  - FEELING ABNORMAL [None]
  - HEADACHE [None]
  - INJURY [None]
  - NAUSEA [None]
  - PRESYNCOPE [None]
  - SURGERY [None]
  - SYNCOPE [None]
  - UNEVALUABLE EVENT [None]
